FAERS Safety Report 4920208-6 (Version None)
Quarter: 2006Q1

REPORT INFORMATION
  Report Type: 
  Country: None (occurrence: None)
  Receive Date: 20060223
  Receipt Date: 20060217
  Transmission Date: 20060701
  Serious: Yes (Other)
  Sender: FDA-Public Use
  Company Number: 2006PK00374

PATIENT
  Age: 560 Month
  Sex: Female
  Weight: 74 kg

DRUGS (3)
  1. NEXIUM [Suspect]
     Indication: GASTRIC ULCER
     Dosage: 20 - 40 MG
     Route: 048
     Dates: start: 20040201
  2. NEXIUM [Suspect]
     Indication: REFLUX OESOPHAGITIS
     Dosage: 20 - 40 MG
     Route: 048
     Dates: start: 20040201
  3. NARAMIG [Concomitant]
     Indication: MIGRAINE
     Dosage: 1 PER MONTH

REACTIONS (1)
  - BREAST CANCER [None]
